FAERS Safety Report 8508517-5 (Version None)
Quarter: 2012Q3

REPORT INFORMATION
  Report Type: 
  Country: None (occurrence: None)
  Receive Date: 20120713
  Receipt Date: 20120705
  Transmission Date: 20120928
  Serious: Yes (Death)
  Sender: FDA-Public Use
  Company Number: MX-SANOFI-AVENTIS-2012SA049415

PATIENT
  Age: 83 Year
  Sex: Female
  Weight: 60 kg

DRUGS (2)
  1. CLOPIDOGREL BISULFATE [Suspect]
     Indication: THROMBOSIS PROPHYLAXIS
     Route: 048
     Dates: start: 20060101
  2. LANTUS [Concomitant]
     Indication: TYPE 2 DIABETES MELLITUS
     Dates: start: 20060101, end: 20110901

REACTIONS (1)
  - DEATH [None]
